FAERS Safety Report 9537623 (Version 1)
Quarter: 2013Q3

REPORT INFORMATION
  Report Type: Spontaneous
  Country: CA (occurrence: CA)
  Receive Date: 20130919
  Receipt Date: 20130919
  Transmission Date: 20140515
  Serious: No
  Sender: FDA-Public Use
  Company Number: CA-B.I. PHARMACEUTICALS,INC./RIDGEFIELD-2013-CN-01544CN

PATIENT
  Age: 64 Year
  Sex: Female

DRUGS (4)
  1. TRAJENTA [Suspect]
     Dates: start: 201204, end: 201301
  2. ZOLOFT [Concomitant]
  3. LIPITOR [Concomitant]
  4. METFORMIN [Concomitant]

REACTIONS (9)
  - Pancreatitis [Unknown]
  - Anaemia [Unknown]
  - Diarrhoea [Unknown]
  - Vomiting [Unknown]
  - Lipase [Unknown]
  - Insomnia [Unknown]
  - Lipase [Unknown]
  - Lipase [Unknown]
  - Headache [Unknown]
